FAERS Safety Report 12864524 (Version 1)
Quarter: 2016Q4

REPORT INFORMATION
  Report Type: Spontaneous
  Country: US (occurrence: US)
  Receive Date: 20161020
  Receipt Date: 20161020
  Transmission Date: 20170207
  Serious: Yes (Other)
  Sender: FDA-Public Use
  Company Number: US-TEVA-674839USA

PATIENT
  Age: 21 Year
  Sex: Female

DRUGS (1)
  1. GLIMEPIRIDE. [Suspect]
     Active Substance: GLIMEPIRIDE
     Indication: MONOGENIC DIABETES
     Route: 065

REACTIONS (8)
  - Hyperhidrosis [Recovered/Resolved]
  - Disorientation [Recovered/Resolved]
  - Hypersomnia [Unknown]
  - Blood glucose decreased [Recovered/Resolved]
  - Product substitution issue [Recovered/Resolved]
  - Blood glucose abnormal [Recovered/Resolved]
  - Adverse event [Recovered/Resolved]
  - Asthenia [Recovered/Resolved]

NARRATIVE: CASE EVENT DATE: 2016
